FAERS Safety Report 7978838-3 (Version None)
Quarter: 2011Q4

REPORT INFORMATION
  Report Type: 
  Country: None (occurrence: None)
  Receive Date: 20111214
  Receipt Date: 20111205
  Transmission Date: 20120403
  Serious: Yes (Other)
  Sender: FDA-Public Use
  Company Number: DE-BRISTOL-MYERS SQUIBB COMPANY-16282014

PATIENT
  Age: 77 Year
  Sex: Female

DRUGS (1)
  1. IRBESARTAN [Suspect]
     Route: 048
     Dates: end: 20111101

REACTIONS (1)
  - LEUKOCYTOCLASTIC VASCULITIS [None]
